FAERS Safety Report 10077316 (Version 2)
Quarter: 2014Q2

REPORT INFORMATION
  Report Type: Spontaneous
  Country: US (occurrence: US)
  Receive Date: 20140414
  Receipt Date: 20140414
  Transmission Date: 20141212
  Serious: No
  Sender: FDA-Public Use
  Company Number: US-BANPHARM-20131300

PATIENT
  Age: 76 Year
  Sex: Male
  Weight: 122.47 kg

DRUGS (3)
  1. ALEVE LIQUID GELS 220 MG [Suspect]
     Indication: ARTHRITIS
     Route: 048
  2. PHILLIPS CHEWABLE TABLETS MINT [Suspect]
     Indication: APHTHOUS STOMATITIS
     Dosage: 2-3 DF, PRN,
     Route: 048
  3. OXYCODONE [Concomitant]

REACTIONS (1)
  - Drug ineffective [Unknown]
